FAERS Safety Report 8123125-6 (Version None)
Quarter: 2012Q1

REPORT INFORMATION
  Report Type: 
  Country: None (occurrence: None)
  Receive Date: 20120206
  Receipt Date: 20120125
  Transmission Date: 20120608
  Serious: Yes (Hospitalization, Other)
  Sender: FDA-Public Use
  Company Number: DSA_54644_2012

PATIENT
  Sex: Female

DRUGS (4)
  1. INTERFERON BETA NOS [Suspect]
     Indication: MULTIPLE SCLEROSIS
     Dosage: (44 UG 3X/WEEK SUBCUTANEOUS)
     Route: 058
     Dates: start: 20020717
  2. CARDIZEM CD [Suspect]
     Indication: HYPERTENSION
     Dosage: (DF)
  3. SYNTHROID [Concomitant]
  4. LISINOPRIL [Suspect]
     Indication: HYPERTENSION
     Dosage: (DF)

REACTIONS (8)
  - BLOOD PRESSURE INCREASED [None]
  - VOMITING [None]
  - LOSS OF CONSCIOUSNESS [None]
  - ASTHENIA [None]
  - INJECTION SITE CELLULITIS [None]
  - VISUAL IMPAIRMENT [None]
  - BLOOD PRESSURE DECREASED [None]
  - FALL [None]
